FAERS Safety Report 7204769-2 (Version None)
Quarter: 2010Q4

REPORT INFORMATION
  Report Type: 
  Country: None (occurrence: None)
  Receive Date: 20101230
  Receipt Date: 20101220
  Transmission Date: 20110411
  Serious: No
  Sender: FDA-Public Use
  Company Number: US-PFIZER INC-2010176645

PATIENT
  Sex: Male

DRUGS (2)
  1. VIAGRA [Suspect]
     Dosage: 50 MG, UNK
  2. CRESTOR [Suspect]

REACTIONS (5)
  - CHILLS [None]
  - MYALGIA [None]
  - PAIN [None]
  - PYREXIA [None]
  - TREMOR [None]
